FAERS Safety Report 14663275 (Version 1)
Quarter: 2018Q1

REPORT INFORMATION
  Report Type: Report from Study
  Country: US (occurrence: US)
  Receive Date: 20180321
  Receipt Date: 20180321
  Transmission Date: 20180509
  Serious: Yes (Other)
  Sender: FDA-Public Use
  Company Number: US-ROCHE-2079549

PATIENT
  Sex: Male

DRUGS (8)
  1. CRESTOR [Concomitant]
     Active Substance: ROSUVASTATIN CALCIUM
     Dosage: 1/2 TABLET
     Route: 048
  2. LASIX [Concomitant]
     Active Substance: FUROSEMIDE
     Route: 048
  3. NUTROPIN AQ [Suspect]
     Active Substance: SOMATROPIN
     Indication: HYPOPITUITARISM
     Route: 058
  4. ATENOLOL. [Concomitant]
     Active Substance: ATENOLOL
     Route: 048
  5. TESTOSTERONE CYPIONATE. [Concomitant]
     Active Substance: TESTOSTERONE CYPIONATE
     Dosage: 200 MG/ML INJECT IN 1ML EVERY 10 DAYS
     Route: 030
  6. FISH OIL [Concomitant]
     Active Substance: FISH OIL
     Route: 065
  7. PLAVIX [Concomitant]
     Active Substance: CLOPIDOGREL BISULFATE
     Route: 048
  8. LEVOTHYROXINE. [Concomitant]
     Active Substance: LEVOTHYROXINE
     Route: 048
     Dates: start: 20130820

REACTIONS (12)
  - Pain [Unknown]
  - Pain in extremity [Unknown]
  - Muscular weakness [Unknown]
  - Pollakiuria [Unknown]
  - Oedema [Unknown]
  - Asthenia [Unknown]
  - Arthralgia [Unknown]
  - Fatigue [Unknown]
  - Pneumonia bacterial [Unknown]
  - Myalgia [Unknown]
  - Feeling abnormal [Unknown]
  - Balance disorder [Unknown]

NARRATIVE: CASE EVENT DATE: 2013
